FAERS Safety Report 8842476 (Version 3)
Quarter: 2013Q2

REPORT INFORMATION
  Report Type: Spontaneous
  Country: IL (occurrence: IL)
  Receive Date: 20121016
  Receipt Date: 20130621
  Transmission Date: 20140414
  Serious: Yes (Hospitalization, Other)
  Sender: FDA-Public Use
  Company Number: IL-009507513-1210ISR006222

PATIENT
  Age: 57 Year
  Sex: Female

DRUGS (1)
  1. JANUVIA [Suspect]
     Dosage: UNK
     Route: 048
     Dates: start: 2010

REACTIONS (2)
  - Pancreatic neoplasm [Recovered/Resolved]
  - Pancreatic operation [Recovered/Resolved]
